FAERS Safety Report 18610482 (Version 1)
Quarter: 2020Q4

REPORT INFORMATION
  Report Type: Report from Study
  Country: CA (occurrence: CA)
  Receive Date: 20201214
  Receipt Date: 20201214
  Transmission Date: 20210114
  Serious: Yes (Other)
  Sender: FDA-Public Use
  Company Number: CA-SAMSUNG BIOEPIS-SB-2020-37042

PATIENT
  Sex: Male
  Weight: 76 kg

DRUGS (1)
  1. RENFLEXIS [Suspect]
     Active Substance: INFLIXIMAB-ABDA
     Indication: CROHN^S DISEASE
     Route: 042
     Dates: start: 20200428

REACTIONS (6)
  - Oropharyngeal pain [Recovered/Resolved]
  - Illness [Unknown]
  - Rhinorrhoea [Recovered/Resolved]
  - Cough [Unknown]
  - Dyspnoea [Unknown]
  - Suspected COVID-19 [Unknown]
